FAERS Safety Report 9909244 (Version 2)
Quarter: 2014Q1

REPORT INFORMATION
  Report Type: Spontaneous
  Country: US (occurrence: US)
  Receive Date: 20140219
  Receipt Date: 20140219
  Transmission Date: 20141002
  Serious: No
  Sender: FDA-Public Use
  Company Number: US-GILEAD-2011-0048594

PATIENT
  Age: 58 Year
  Sex: Male

DRUGS (2)
  1. LETAIRIS [Suspect]
     Indication: PRODUCT USED FOR UNKNOWN INDICATION
     Dosage: 5 MG, UNK
     Route: 048
     Dates: start: 20111205
  2. VENTAVIS [Concomitant]

REACTIONS (3)
  - Erythema [Unknown]
  - Local swelling [Unknown]
  - Dyspnoea [Unknown]
